FAERS Safety Report 24079745 (Version 2)
Quarter: 2025Q3

REPORT INFORMATION
  Report Type: Spontaneous
  Country: US (occurrence: US)
  Receive Date: 20240711
  Receipt Date: 20250812
  Transmission Date: 20251021
  Serious: No
  Sender: MYLAN
  Company Number: US-MYLANLABS-2024M1064325

PATIENT
  Age: 74 Year
  Sex: Female
  Weight: 81.65 kg

DRUGS (48)
  1. REVATIO [Suspect]
     Active Substance: SILDENAFIL CITRATE
     Indication: Product used for unknown indication
     Dosage: 80 MILLIGRAM, TID (3 TIMES A DAY)
     Route: 065
  2. REVATIO [Suspect]
     Active Substance: SILDENAFIL CITRATE
     Dosage: 80 MILLIGRAM, TID (3 TIMES A DAY)
  3. REVATIO [Suspect]
     Active Substance: SILDENAFIL CITRATE
     Dosage: 80 MILLIGRAM, TID (3 TIMES A DAY)
  4. REVATIO [Suspect]
     Active Substance: SILDENAFIL CITRATE
     Dosage: 80 MILLIGRAM, TID (3 TIMES A DAY)
     Route: 065
  5. REVATIO [Suspect]
     Active Substance: SILDENAFIL CITRATE
     Dosage: 60 MILLIGRAM, TID (3 TIMES A DAY)
     Route: 065
  6. REVATIO [Suspect]
     Active Substance: SILDENAFIL CITRATE
     Dosage: 60 MILLIGRAM, TID (3 TIMES A DAY)
  7. REVATIO [Suspect]
     Active Substance: SILDENAFIL CITRATE
     Dosage: 60 MILLIGRAM, TID (3 TIMES A DAY)
  8. REVATIO [Suspect]
     Active Substance: SILDENAFIL CITRATE
     Dosage: 60 MILLIGRAM, TID (3 TIMES A DAY)
     Route: 065
  9. TYVASO [Suspect]
     Active Substance: TREPROSTINIL
     Indication: Pulmonary arterial hypertension
     Dosage: 54 MICROGRAM, QID (9 BREATHS, FOUR TIMES A DAY)
     Dates: start: 20210802
  10. TYVASO [Suspect]
     Active Substance: TREPROSTINIL
     Dosage: 54 MICROGRAM, QID (9 BREATHS, FOUR TIMES A DAY)
     Route: 055
     Dates: start: 20210802
  11. TYVASO [Suspect]
     Active Substance: TREPROSTINIL
     Dosage: 54 MICROGRAM, QID (9 BREATHS, FOUR TIMES A DAY)
     Route: 055
     Dates: start: 20210802
  12. TYVASO [Suspect]
     Active Substance: TREPROSTINIL
     Dosage: 54 MICROGRAM, QID (9 BREATHS, FOUR TIMES A DAY)
     Dates: start: 20210802
  13. XANAX [Concomitant]
     Active Substance: ALPRAZOLAM
  14. XANAX [Concomitant]
     Active Substance: ALPRAZOLAM
     Route: 065
  15. XANAX [Concomitant]
     Active Substance: ALPRAZOLAM
     Route: 065
  16. XANAX [Concomitant]
     Active Substance: ALPRAZOLAM
  17. LASIX [Concomitant]
     Active Substance: FUROSEMIDE
  18. LASIX [Concomitant]
     Active Substance: FUROSEMIDE
     Route: 065
  19. LASIX [Concomitant]
     Active Substance: FUROSEMIDE
     Route: 065
  20. LASIX [Concomitant]
     Active Substance: FUROSEMIDE
  21. UBRELVY [Concomitant]
     Active Substance: UBROGEPANT
  22. UBRELVY [Concomitant]
     Active Substance: UBROGEPANT
     Route: 065
  23. UBRELVY [Concomitant]
     Active Substance: UBROGEPANT
     Route: 065
  24. UBRELVY [Concomitant]
     Active Substance: UBROGEPANT
  25. ZOCOR [Concomitant]
     Active Substance: SIMVASTATIN
  26. ZOCOR [Concomitant]
     Active Substance: SIMVASTATIN
     Route: 065
  27. ZOCOR [Concomitant]
     Active Substance: SIMVASTATIN
     Route: 065
  28. ZOCOR [Concomitant]
     Active Substance: SIMVASTATIN
  29. ASPIRIN [Concomitant]
     Active Substance: ASPIRIN
  30. ASPIRIN [Concomitant]
     Active Substance: ASPIRIN
     Route: 065
  31. ASPIRIN [Concomitant]
     Active Substance: ASPIRIN
     Route: 065
  32. ASPIRIN [Concomitant]
     Active Substance: ASPIRIN
  33. ACIPHEX [Concomitant]
     Active Substance: RABEPRAZOLE SODIUM
  34. ACIPHEX [Concomitant]
     Active Substance: RABEPRAZOLE SODIUM
     Route: 065
  35. ACIPHEX [Concomitant]
     Active Substance: RABEPRAZOLE SODIUM
     Route: 065
  36. ACIPHEX [Concomitant]
     Active Substance: RABEPRAZOLE SODIUM
  37. OXYGEN [Concomitant]
     Active Substance: OXYGEN
  38. OXYGEN [Concomitant]
     Active Substance: OXYGEN
     Route: 065
  39. OXYGEN [Concomitant]
     Active Substance: OXYGEN
     Route: 065
  40. OXYGEN [Concomitant]
     Active Substance: OXYGEN
  41. AMBRISENTAN [Concomitant]
     Active Substance: AMBRISENTAN
  42. AMBRISENTAN [Concomitant]
     Active Substance: AMBRISENTAN
     Route: 065
  43. AMBRISENTAN [Concomitant]
     Active Substance: AMBRISENTAN
     Route: 065
  44. AMBRISENTAN [Concomitant]
     Active Substance: AMBRISENTAN
  45. WINREVAIR [Concomitant]
     Active Substance: SOTATERCEPT-CSRK
  46. WINREVAIR [Concomitant]
     Active Substance: SOTATERCEPT-CSRK
     Route: 065
  47. WINREVAIR [Concomitant]
     Active Substance: SOTATERCEPT-CSRK
     Route: 065
  48. WINREVAIR [Concomitant]
     Active Substance: SOTATERCEPT-CSRK

REACTIONS (3)
  - Paraesthesia [Unknown]
  - Malaise [Unknown]
  - Inappropriate schedule of product administration [Unknown]

NARRATIVE: CASE EVENT DATE: 20240626
